FAERS Safety Report 5729230-3 (Version None)
Quarter: 2008Q2

REPORT INFORMATION
  Report Type: 
  Country: None (occurrence: None)
  Receive Date: 20080506
  Receipt Date: 20080501
  Transmission Date: 20081010
  Serious: Yes (Other)
  Sender: FDA-Public Use
  Company Number: AR-ABBOTT-08P-007-0450321-00

PATIENT
  Age: 30 Year
  Sex: Female

DRUGS (3)
  1. NORVIR [Suspect]
     Indication: ANTIRETROVIRAL THERAPY
     Dates: start: 20060428, end: 20080208
  2. TRUVADA [Suspect]
     Indication: ANTIRETROVIRAL THERAPY
     Dates: start: 20060428, end: 20080208
  3. ATAZANAVIR SULFATE [Suspect]
     Indication: ANTIRETROVIRAL THERAPY
     Dosage: 300 MG DAILY
     Route: 048
     Dates: start: 20060428, end: 20080204

REACTIONS (1)
  - ABORTION SPONTANEOUS [None]
